FAERS Safety Report 23663444 (Version 1)
Quarter: 2024Q1

REPORT INFORMATION
  Report Type: Spontaneous
  Country: US (occurrence: US)
  Receive Date: 20240322
  Receipt Date: 20240322
  Transmission Date: 20240409
  Serious: No
  Sender: FDA-Public Use
  Company Number: US-SA-SAC20240315001385

PATIENT

DRUGS (1)
  1. THYROGEN [Suspect]
     Active Substance: THYROTROPIN ALFA
     Indication: Thyroidectomy
     Dosage: UNK
     Route: 030

REACTIONS (3)
  - Throat irritation [Unknown]
  - Nasopharyngitis [Unknown]
  - Headache [Unknown]
